FAERS Safety Report 5466106-3 (Version None)
Quarter: 2007Q3

REPORT INFORMATION
  Report Type: 
  Country: None (occurrence: None)
  Receive Date: 20070924
  Receipt Date: 20070918
  Transmission Date: 20080115
  Serious: Yes (Other)
  Sender: FDA-Public Use
  Company Number: US-PFIZER INC-2007074656

PATIENT
  Sex: Male
  Weight: 121.1 kg

DRUGS (5)
  1. GENOTROPIN [Suspect]
     Indication: HYPOPITUITARISM
     Route: 058
     Dates: start: 20040101, end: 20070913
  2. LISINOPRIL [Concomitant]
     Indication: HYPERTENSION
  3. ATENOLOL [Concomitant]
     Indication: HYPERTENSION
  4. SYNTHROID [Concomitant]
     Indication: THYROID DISORDER
  5. ALLOPURINOL [Concomitant]
     Indication: GOUT

REACTIONS (3)
  - EYE SWELLING [None]
  - LIP SWELLING [None]
  - URTICARIA [None]
